FAERS Safety Report 13822691 (Version 3)
Quarter: 2018Q3

REPORT INFORMATION
  Report Type: Report from Study
  Country: US (occurrence: US)
  Receive Date: 20170801
  Receipt Date: 20180830
  Transmission Date: 20181010
  Serious: Yes (Hospitalization, Other)
  Sender: FDA-Public Use
  Company Number: US-ACTELION-A-NJ2017-157328

PATIENT
  Age: 75 Year
  Sex: Female
  Weight: 56.69 kg

DRUGS (3)
  1. ADCIRCA [Concomitant]
     Active Substance: TADALAFIL
  2. AMLODIPINE [Concomitant]
     Active Substance: AMLODIPINE BESYLATE
  3. VELETRI [Suspect]
     Active Substance: EPOPROSTENOL
     Indication: PULMONARY ARTERIAL HYPERTENSION
     Dosage: 39 NG/KG, PER MIN
     Route: 042

REACTIONS (9)
  - Blood creatinine increased [Unknown]
  - Anaemia [Unknown]
  - Diarrhoea [Unknown]
  - Pain in jaw [Unknown]
  - Viral infection [Unknown]
  - Renal failure [Unknown]
  - Dialysis [Unknown]
  - Fatigue [Unknown]
  - Pyrexia [Unknown]
